FAERS Safety Report 4992745-X (Version None)
Quarter: 2006Q1

REPORT INFORMATION
  Report Type: 
  Country: None (occurrence: None)
  Receive Date: 20060315
  Receipt Date: 20050824
  Transmission Date: 20060701
  Serious: Yes (Disabling)
  Sender: FDA-Public Use
  Company Number: MED-05049

PATIENT
  Age: 65 Year
  Sex: Female

DRUGS (1)
  1. PREDNISONE TAB [Suspect]
     Indication: ARTHRITIS
     Dosage: ONE TABLET/DAY ORAL
     Route: 048
     Dates: start: 20050502, end: 20050512

REACTIONS (1)
  - HYPOAESTHESIA [None]
